FAERS Safety Report 25700044 (Version 1)
Quarter: 2025Q3

REPORT INFORMATION
  Report Type: Spontaneous
  Country: US (occurrence: None)
  Receive Date: 20250818
  Receipt Date: 20250818
  Transmission Date: 20251020
  Serious: Yes (Life-Threatening, Hospitalization, Disabling)
  Sender: FDA-CTU
  Company Number: None

PATIENT
  Age: 42 Year
  Sex: Female
  Weight: 90 kg

DRUGS (6)
  1. VENLAFAXINE [Suspect]
     Active Substance: VENLAFAXINE HYDROCHLORIDE
     Indication: Obsessive-compulsive disorder
  2. VENLAFAXINE [Suspect]
     Active Substance: VENLAFAXINE HYDROCHLORIDE
     Indication: Anxiety
  3. PRISTIQ EXTENDED-RELEASE [Suspect]
     Active Substance: DESVENLAFAXINE SUCCINATE
  4. RISPERIDONE [Suspect]
     Active Substance: RISPERIDONE
  5. TRAZODONE [Suspect]
     Active Substance: TRAZODONE HYDROCHLORIDE
  6. PROPRANOLOL [Suspect]
     Active Substance: PROPRANOLOL HYDROCHLORIDE

REACTIONS (13)
  - Nausea [None]
  - Hypophagia [None]
  - Dizziness [None]
  - Crying [None]
  - Faeces discoloured [None]
  - Oversensing [None]
  - Panic disorder [None]
  - Depression [None]
  - Suicidal ideation [None]
  - General physical condition abnormal [None]
  - Mental impairment [None]
  - Withdrawal syndrome [None]
  - Influenza like illness [None]

NARRATIVE: CASE EVENT DATE: 20221101
